FAERS Safety Report 21257507 (Version 1)
Quarter: 2022Q3

REPORT INFORMATION
  Report Type: Spontaneous
  Country: NL (occurrence: NL)
  Receive Date: 20220826
  Receipt Date: 20220826
  Transmission Date: 20221027
  Serious: Yes (Hospitalization)
  Sender: FDA-Public Use
  Company Number: None

PATIENT
  Age: 71 Year
  Sex: Female
  Weight: 98 kg

DRUGS (3)
  1. SOTALOL [Suspect]
     Active Substance: SOTALOL
     Indication: Tachycardia
     Dosage: 160 MILLIGRAM DAILY; FROM 2 X A DAY, FORM STRENGTH:  80MG, UNIT DOSE: 80 MG, FREQUENCY TIME-12 HRS,
  2. SOTALOL [Suspect]
     Active Substance: SOTALOL
     Dosage: 240 MILLIGRAM DAILY; 3 X A DAY, FORM STRENGTH:  80MG, UNIT DOSE: 80 MG, FREQUENCY TIME-8 HRS, DURATI
     Dates: start: 20220708, end: 20220724
  3. ELIQUIS [Concomitant]
     Active Substance: APIXABAN
     Indication: Product used for unknown indication
     Dosage: FORM STRENGTH: 5MG, THERAPY START DATE AND END DATE: ASKU

REACTIONS (3)
  - Respiratory arrest [Recovered/Resolved]
  - Loss of consciousness [Recovered/Resolved]
  - Electrocardiogram QT prolonged [Recovered/Resolved]

NARRATIVE: CASE EVENT DATE: 20220724
